FAERS Safety Report 25388114 (Version 1)
Quarter: 2025Q2

REPORT INFORMATION
  Report Type: Spontaneous
  Country: US (occurrence: US)
  Receive Date: 20250603
  Receipt Date: 20250603
  Transmission Date: 20250717
  Serious: No
  Sender: GLAXOSMITHKLINE
  Company Number: US-GSK-US2025068198

PATIENT
  Age: 74 Year
  Sex: Male
  Weight: 94.35 kg

DRUGS (1)
  1. TRELEGY ELLIPTA [Suspect]
     Active Substance: FLUTICASONE FUROATE\UMECLIDINIUM BROMIDE\VILANTEROL TRIFENATATE
     Indication: Chronic obstructive pulmonary disease
     Dates: start: 202412

REACTIONS (4)
  - Dry skin [Not Recovered/Not Resolved]
  - Wound [Unknown]
  - Skin laceration [Unknown]
  - Skin abrasion [Unknown]

NARRATIVE: CASE EVENT DATE: 20250501
